FAERS Safety Report 23844182 (Version 2)
Quarter: 2024Q3

REPORT INFORMATION
  Report Type: Report from Study
  Country: IT (occurrence: IT)
  Receive Date: 20240510
  Receipt Date: 20240703
  Transmission Date: 20241016
  Serious: Yes (Hospitalization, Other)
  Sender: TEVA
  Company Number: None

PATIENT
  Age: 14 Year
  Sex: Female
  Weight: 53 kg

DRUGS (6)
  1. METHOTREXATE [Suspect]
     Active Substance: METHOTREXATE
     Indication: Acute lymphocytic leukaemia recurrent
     Dosage: 153.90 MG INFUSION IN 50 ML NACL 0.9% IN 30 MIN. + 1385.00 MG INFUSION IN 750 ML NACL 0.9% IN 213...
     Route: 042
     Dates: start: 20240323, end: 20240324
  2. ONCASPAR [Suspect]
     Active Substance: PEGASPARGASE
     Indication: Acute lymphocytic leukaemia recurrent
     Dosage: 1539.00 IU INFUSION IN 100 ML NACL 0.9% IN 120 MIN. ON 26/03 AND 09/04/2024
     Route: 042
     Dates: start: 20240326, end: 20240409
  3. CYTARABINE [Suspect]
     Active Substance: CYTARABINE
     Indication: Acute lymphocytic leukaemia recurrent
     Dosage: 4515.00 MG X 2 VV INFUSION IN 500 ML NACL 0.9% IN 180 MIN.
     Route: 042
     Dates: start: 20240407, end: 20240407
  4. DECADRON [Concomitant]
     Active Substance: DEXAMETHASONE
     Indication: Acute lymphocytic leukaemia recurrent
     Dosage: 30 MG/DAY FROM 03/22 TO 03/27/2024?30 MG/DAY FROM 05/04 TO 10/04/2024
     Route: 042
     Dates: start: 20240327, end: 20240410
  5. PANTOPRAZOLE [Concomitant]
     Active Substance: PANTOPRAZOLE
     Indication: Prophylaxis against gastrointestinal ulcer
     Dosage: 40 MG/DAY FROM 03/20 TO 03/27/2024?40 MG/DAY FROM 05/04 TO 10/04/2024
     Route: 042
     Dates: start: 20240327, end: 20240410
  6. VINCRISTINE [Suspect]
     Active Substance: VINCRISTINE
     Indication: Acute lymphocytic leukaemia recurrent
     Dosage: 2 MG/DAY BOLUS IV IN 20 ML NACL 0.9% INFUSION OVER 3 MIN. ON 28/03, 06/04/2024,?VINCRISTINE TEVA ...
     Route: 042
     Dates: start: 20240328, end: 20240406

REACTIONS (5)
  - Febrile neutropenia [Recovering/Resolving]
  - Anaemia [Recovering/Resolving]
  - Abdominal pain [Recovered/Resolved]
  - Pancytopenia [Recovering/Resolving]
  - Febrile neutropenia [Recovered/Resolved]

NARRATIVE: CASE EVENT DATE: 20240403
